FAERS Safety Report 18276629 (Version 1)
Quarter: 2020Q3

REPORT INFORMATION
  Report Type: Spontaneous
  Country: US (occurrence: US)
  Receive Date: 20200917
  Receipt Date: 20200917
  Transmission Date: 20201103
  Serious: Yes (Other)
  Sender: FDA-Public Use
  Company Number: US-SA-2020SA250266

PATIENT

DRUGS (1)
  1. DUPIXENT [Suspect]
     Active Substance: DUPILUMAB
     Dosage: 300 MG, QOW, OTHER
     Dates: start: 20190914

REACTIONS (2)
  - Ovarian cyst ruptured [Unknown]
  - Depression [Unknown]

NARRATIVE: CASE EVENT DATE: 2019
